FAERS Safety Report 16244148 (Version 3)
Quarter: 2019Q2

REPORT INFORMATION
  Report Type: Report from Study
  Country: US (occurrence: US)
  Receive Date: 20190426
  Receipt Date: 20190507
  Transmission Date: 20190711
  Serious: Yes (Hospitalization)
  Sender: FDA-Public Use
  Company Number: PHHO2019US004385

PATIENT
  Age: 68 Year
  Sex: Female
  Weight: 53.5 kg

DRUGS (2)
  1. KISQALI [Suspect]
     Active Substance: RIBOCICLIB
     Indication: NEUROENDOCRINE TUMOUR
     Dosage: 200 MG, UNK
     Route: 048
     Dates: start: 20190320, end: 20190426
  2. AFINITOR [Suspect]
     Active Substance: EVEROLIMUS
     Indication: NEUROENDOCRINE TUMOUR
     Dosage: 5 MG, UNK
     Route: 048
     Dates: start: 20190320, end: 20190426

REACTIONS (1)
  - Febrile neutropenia [Recovered/Resolved]

NARRATIVE: CASE EVENT DATE: 20190413
